FAERS Safety Report 11595874 (Version 1)
Quarter: 2015Q4

REPORT INFORMATION
  Report Type: Spontaneous
  Country: US (occurrence: US)
  Receive Date: 20151006
  Receipt Date: 20151006
  Transmission Date: 20160304
  Serious: No
  Sender: FDA-Public Use
  Company Number: US-009507513-1509USA013829

PATIENT
  Age: 59 Year
  Sex: Female

DRUGS (1)
  1. NASONEX [Suspect]
     Active Substance: MOMETASONE FUROATE
     Indication: SINUSITIS
     Dosage: 2 SPRAYS/ONCE PER DAY
     Route: 045
     Dates: start: 20150814, end: 20150817

REACTIONS (3)
  - Burning sensation [Recovered/Resolved]
  - Headache [Recovered/Resolved]
  - Cough [Recovered/Resolved]

NARRATIVE: CASE EVENT DATE: 20150814
